FAERS Safety Report 9479597 (Version 5)
Quarter: 2014Q4

REPORT INFORMATION
  Report Type: Report from Study
  Country: BR (occurrence: BR)
  Receive Date: 20130827
  Receipt Date: 20141126
  Transmission Date: 20150529
  Serious: Yes (Hospitalization, Other)
  Sender: FDA-Public Use
  Company Number: PHHY2013BR064568

PATIENT
  Sex: Female
  Weight: 39 kg

DRUGS (13)
  1. EXJADE [Suspect]
     Active Substance: DEFERASIROX
     Dosage: 500 MG, (1 DF)
     Route: 048
  2. EXJADE [Suspect]
     Active Substance: DEFERASIROX
     Dosage: 2 DF (125 MG), DAILY (FASTING)
     Route: 048
  3. EXJADE [Suspect]
     Active Substance: DEFERASIROX
     Dosage: 1000 MG, (2 DF 500 MG)
     Route: 048
  4. EXJADE [Suspect]
     Active Substance: DEFERASIROX
     Dosage: 1 DF (500 MG),DAILY (FASTING)
     Route: 048
  5. EXJADE [Suspect]
     Active Substance: DEFERASIROX
     Indication: SICKLE CELL ANAEMIA
     Dosage: 1125 MG, (2 DF 500 MG/1 DF 125 MG)
     Route: 048
     Dates: start: 2011
  6. EXJADE [Suspect]
     Active Substance: DEFERASIROX
     Dosage: 625 MG, (1DF 500 MG/ 1 DF 125 MG)
     Route: 048
     Dates: start: 201305
  7. FOLIC ACID. [Concomitant]
     Active Substance: FOLIC ACID
     Indication: SICKLE CELL ANAEMIA
     Dosage: 1 DF, QD
     Route: 065
  8. EXJADE [Suspect]
     Active Substance: DEFERASIROX
     Dosage: 1 DF (125 MG), UNK
     Route: 048
     Dates: start: 201305
  9. HYDROXYUREA. [Concomitant]
     Active Substance: HYDROXYUREA
     Indication: PRODUCT USED FOR UNKNOWN INDICATION
     Dosage: UNK
     Route: 065
  10. EXJADE [Suspect]
     Active Substance: DEFERASIROX
     Dosage: 1 DF (500 MG),DAILY (FASTING)
     Route: 048
  11. EXJADE [Suspect]
     Active Substance: DEFERASIROX
     Dosage: 1000 MG, (2DF OF 500 MG)
     Route: 048
     Dates: end: 201212
  12. EXJADE [Suspect]
     Active Substance: DEFERASIROX
     Dosage: 625 MG, (1DF 500 MG/ 1 DF 125 MG)
     Route: 048
  13. EXJADE [Suspect]
     Active Substance: DEFERASIROX
     Dosage: 2 DF (500 MG), DAILY (FASTING)
     Route: 048

REACTIONS (13)
  - Limb injury [Unknown]
  - Concomitant disease aggravated [Unknown]
  - Feeling abnormal [Unknown]
  - Varicose ulceration [Unknown]
  - Malaise [Unknown]
  - Abdominal pain upper [Recovered/Resolved]
  - Pain in extremity [Unknown]
  - Diarrhoea [Unknown]
  - Weight decreased [Recovering/Resolving]
  - Decreased appetite [Recovering/Resolving]
  - Eating disorder [Recovering/Resolving]
  - Nausea [Recovered/Resolved]
  - Vomiting [Recovered/Resolved]
